FAERS Safety Report 6517933-2 (Version None)
Quarter: 2009Q4

REPORT INFORMATION
  Report Type: 
  Country: None (occurrence: None)
  Receive Date: 20091223
  Receipt Date: 20091223
  Transmission Date: 20100525
  Serious: Yes (Disabling, Other)
  Sender: FDA-Public Use
  Company Number: None

PATIENT
  Age: 20 Year
  Sex: Female
  Weight: 56.246 kg

DRUGS (1)
  1. ARMOUR THYROID MEDICATION [Suspect]
     Indication: THYROID DISORDER
     Dosage: 1 PILL DAILY

REACTIONS (4)
  - ALOPECIA [None]
  - ASTHENIA [None]
  - GASTRIC DISORDER [None]
  - PRODUCT SUBSTITUTION ISSUE [None]
